FAERS Safety Report 16436324 (Version 3)
Quarter: 2019Q3

REPORT INFORMATION
  Report Type: Spontaneous
  Country: US (occurrence: US)
  Receive Date: 20190614
  Receipt Date: 20190802
  Transmission Date: 20191004
  Serious: No
  Sender: FDA-Public Use
  Company Number: US-JNJFOC-20190616003

PATIENT
  Sex: Female
  Weight: 62.65 kg

DRUGS (3)
  1. MINOXIDIL. [Suspect]
     Active Substance: MINOXIDIL
     Indication: ALOPECIA
     Dosage: HALF CAP ONCE EVERY 1-2 DAYS
     Route: 061
     Dates: start: 201811, end: 20190611
  2. CARVEDILOL. [Concomitant]
     Active Substance: CARVEDILOL
     Indication: HYPERTENSION
     Route: 065
  3. MINOXIDIL. [Suspect]
     Active Substance: MINOXIDIL
     Dosage: 1/2 CAPFUL EVERY OTHER DAY
     Route: 061

REACTIONS (3)
  - Secretion discharge [Not Recovered/Not Resolved]
  - Dandruff [Recovered/Resolved]
  - Erythema [Recovered/Resolved]
